FAERS Safety Report 9386919 (Version 1)
Quarter: 2013Q3

REPORT INFORMATION
  Report Type: Spontaneous
  Country: FR (occurrence: FR)
  Receive Date: 20130708
  Receipt Date: 20130708
  Transmission Date: 20140515
  Serious: Yes (Hospitalization, Other)
  Sender: FDA-Public Use
  Company Number: 2013SP005052

PATIENT
  Age: 72 Year
  Sex: Female

DRUGS (7)
  1. VANCOMYCIN [Suspect]
     Indication: PRODUCT USED FOR UNKNOWN INDICATION
  2. PREDNISONE [Suspect]
     Indication: PRODUCT USED FOR UNKNOWN INDICATION
     Dates: end: 200807
  3. PREDNISONE [Suspect]
     Indication: PRODUCT USED FOR UNKNOWN INDICATION
     Dates: start: 200807
  4. ETANERCEPT [Suspect]
     Indication: RHEUMATOID ARTHRITIS
     Dates: start: 200705, end: 200807
  5. ETANERCEPT [Suspect]
     Indication: RHEUMATOID ARTHRITIS
     Dates: start: 200807, end: 200901
  6. LEFLUNOMIDE [Concomitant]
     Dates: start: 199904, end: 200708
  7. LEFLUNOMIDE [Concomitant]
     Dates: start: 200807, end: 200901

REACTIONS (9)
  - Renal failure [Not Recovered/Not Resolved]
  - Hepatic failure [Recovered/Resolved]
  - Enterobacter sepsis [Recovered/Resolved]
  - Urinary tract infection enterococcal [Recovered/Resolved]
  - Urinary tract infection [Recovered/Resolved]
  - Tuberculosis [Unknown]
  - Myocardial infarction [Recovered/Resolved]
  - Hypothermia [Recovered/Resolved]
  - Diarrhoea [Unknown]
